FAERS Safety Report 8516435-1 (Version None)
Quarter: 2012Q3

REPORT INFORMATION
  Report Type: 
  Country: None (occurrence: None)
  Receive Date: 20120718
  Receipt Date: 20120704
  Transmission Date: 20120928
  Serious: Yes (Other)
  Sender: FDA-Public Use
  Company Number: ES-009507513-1207ESP000704

PATIENT

DRUGS (2)
  1. NOXAFIL [Suspect]
     Indication: FUNGAL INFECTION
     Route: 048
  2. POSACONAZOLE [Suspect]
     Indication: FUNGAL INFECTION
     Dosage: UNK
     Route: 042
     Dates: start: 20120630

REACTIONS (1)
  - OVERDOSE [None]
